FAERS Safety Report 14563672 (Version 10)
Quarter: 2022Q3

REPORT INFORMATION
  Report Type: Spontaneous
  Country: US (occurrence: US)
  Receive Date: 20180222
  Receipt Date: 20220804
  Transmission Date: 20221027
  Serious: Yes (Hospitalization)
  Sender: FDA-Public Use
  Company Number: US-VIFOR (INTERNATIONAL) INC.-VIT-2018-01103

PATIENT
  Age: 81 Year
  Sex: Female
  Weight: 68.100 kg

DRUGS (18)
  1. VELTASSA [Suspect]
     Active Substance: PATIROMER
     Indication: Hyperkalaemia
     Route: 048
     Dates: start: 20160301
  2. VELTASSA [Suspect]
     Active Substance: PATIROMER
     Route: 048
  3. VELTASSA [Suspect]
     Active Substance: PATIROMER
     Route: 048
     Dates: start: 201603, end: 20210220
  4. VELTASSA [Suspect]
     Active Substance: PATIROMER
     Dosage: DOUBLE DOSE
     Route: 048
  5. VELTASSA [Suspect]
     Active Substance: PATIROMER
     Route: 048
     Dates: start: 20220215
  6. VELTASSA [Suspect]
     Active Substance: PATIROMER
     Dosage: TAKE 2 PACKETS PER DAY FOR 1 WEEK
     Route: 048
  7. ZANTAC [Concomitant]
     Active Substance: RANITIDINE HYDROCHLORIDE
  8. TYLENOL [Concomitant]
     Active Substance: ACETAMINOPHEN
  9. SYNTHROID [Concomitant]
     Active Substance: LEVOTHYROXINE SODIUM
  10. PROPAFEONE HCL [Concomitant]
  11. PRADAXA [Concomitant]
     Active Substance: DABIGATRAN ETEXILATE MESYLATE
  12. OMEPRAZOLE [Concomitant]
     Active Substance: OMEPRAZOLE
  13. METOPROLOL TARTRATE [Concomitant]
     Active Substance: METOPROLOL TARTRATE
  14. METFORMIN HYDROCHLORIDE [Concomitant]
     Active Substance: METFORMIN HYDROCHLORIDE
  15. LIPITOR [Concomitant]
     Active Substance: ATORVASTATIN CALCIUM
  16. LEXAPRO [Concomitant]
     Active Substance: ESCITALOPRAM OXALATE
  17. ELIQUIS [Concomitant]
     Active Substance: APIXABAN
  18. AMARYL [Concomitant]
     Active Substance: GLIMEPIRIDE

REACTIONS (9)
  - Atrial fibrillation [Unknown]
  - Cystitis [Unknown]
  - Urinary tract infection [Unknown]
  - Blood electrolytes abnormal [Unknown]
  - Abnormal faeces [Unknown]
  - Blood pressure increased [Unknown]
  - Blood potassium increased [Not Recovered/Not Resolved]
  - Off label use [Unknown]
  - Incorrect dose administered [Unknown]

NARRATIVE: CASE EVENT DATE: 20160301
